FAERS Safety Report 5688587-2 (Version None)
Quarter: 2008Q1

REPORT INFORMATION
  Report Type: 
  Country: None (occurrence: None)
  Receive Date: 20080331
  Receipt Date: 20080319
  Transmission Date: 20080703
  Serious: Yes (Other)
  Sender: FDA-Public Use
  Company Number: PHHY2008AT01504

PATIENT
  Sex: Female
  Weight: 74 kg

DRUGS (1)
  1. ZOMETA [Suspect]
     Indication: OSTEOGENESIS IMPERFECTA
     Dosage: 4 MG/YEAR

REACTIONS (1)
  - NEPHROLITHIASIS [None]
